FAERS Safety Report 14556635 (Version 2)
Quarter: 2018Q2

REPORT INFORMATION
  Report Type: Spontaneous
  Country: US (occurrence: US)
  Receive Date: 20180221
  Receipt Date: 20180507
  Transmission Date: 20180711
  Serious: Yes (Hospitalization)
  Sender: FDA-Public Use
  Company Number: US-PFIZER INC-2018069361

PATIENT
  Age: 83 Year
  Sex: Male
  Weight: 69 kg

DRUGS (2)
  1. SUTENT [Suspect]
     Active Substance: SUNITINIB MALATE
     Indication: RENAL CANCER
     Dosage: 50 MG, CYCLIC (D 1-28 Q 42 DAYS)
     Route: 048
     Dates: start: 20180207, end: 20180305
  2. SUTENT [Suspect]
     Active Substance: SUNITINIB MALATE
     Dosage: 50 MG, CYCLIC (D1-28 Q42 DAYS)
     Route: 048
     Dates: start: 20180207, end: 201805

REACTIONS (9)
  - Peripheral swelling [Unknown]
  - Neoplasm progression [Unknown]
  - Swelling face [Unknown]
  - Dyspnoea [Unknown]
  - Pain in extremity [Unknown]
  - Pruritus [Unknown]
  - Joint swelling [Unknown]
  - Eye swelling [Unknown]
  - Full blood count decreased [Unknown]

NARRATIVE: CASE EVENT DATE: 201802
